FAERS Safety Report 7802608 (Version 3)
Quarter: 2014Q2

REPORT INFORMATION
  Report Type: Report from Study
  Country: JP (occurrence: JP)
  Receive Date: 20110207
  Receipt Date: 20140423
  Transmission Date: 20141212
  Serious: Yes (Hospitalization, Other)
  Sender: FDA-Public Use
  Company Number: JP-CELGENEUS-087-21880-11012560

PATIENT
  Age: 71 Year
  Sex: Male
  Weight: 54.2 kg

DRUGS (10)
  1. REVLIMID [Suspect]
     Indication: 5Q MINUS SYNDROME
     Dosage: 5 MILLIGRAM
     Route: 048
     Dates: start: 20100913, end: 20101003
  2. REVLIMID [Suspect]
     Dosage: 5 MILLIGRAM
     Route: 048
     Dates: start: 20110809, end: 20110829
  3. GURAK [Concomitant]
     Indication: MYELODYSPLASTIC SYNDROME
     Dosage: 45 MILLIGRAM
     Route: 048
  4. PRIMOBOLAN [Concomitant]
     Indication: MYELODYSPLASTIC SYNDROME
     Dosage: 10 MILLIGRAM
     Route: 048
  5. OMEPRAL [Concomitant]
     Indication: MYELODYSPLASTIC SYNDROME
     Dosage: 20 MILLIGRAM
     Route: 048
  6. EXJADE [Concomitant]
     Indication: IRON OVERLOAD
     Dosage: 1000 MILLIGRAM
     Route: 048
  7. BAYASPIRIN [Concomitant]
     Indication: ANGINA PECTORIS
     Dosage: 100 MILLIGRAM
     Route: 048
  8. DIGOSIN [Concomitant]
     Indication: ANGINA PECTORIS
     Dosage: .2 GRAM
     Route: 048
  9. ITOROL [Concomitant]
     Indication: ANGINA PECTORIS
     Dosage: 40 MILLIGRAM
     Route: 048
  10. CRAVIT [Concomitant]
     Indication: PROPHYLAXIS
     Dosage: 500 MILLIGRAM
     Route: 048
     Dates: start: 20100918, end: 20100924

REACTIONS (6)
  - Blood immunoglobulin E increased [Not Recovered/Not Resolved]
  - Eosinophil count increased [Recovered/Resolved]
  - Dermatitis allergic [Not Recovered/Not Resolved]
  - Thrombocytopenia [Recovered/Resolved]
  - Neutropenia [Recovered/Resolved]
  - Dermatitis allergic [Not Recovered/Not Resolved]
